FAERS Safety Report 5028661-7 (Version None)
Quarter: 2006Q2

REPORT INFORMATION
  Report Type: 
  Country: None (occurrence: None)
  Receive Date: 20060619
  Receipt Date: 20060607
  Transmission Date: 20061013
  Serious: Yes (Other)
  Sender: FDA-Public Use
  Company Number: PHEH2006US07489

PATIENT
  Age: 63 Year
  Sex: Female

DRUGS (5)
  1. TRIAMPUR [Concomitant]
     Indication: BLOOD PRESSURE INCREASED
     Dosage: 37.5/25, UNK
  2. MINOCYCLINE HCL [Concomitant]
     Indication: OSTEOARTHRITIS
     Dosage: 200 MG, UNK
  3. LEVOTHYROXINE SODIUM [Concomitant]
     Indication: THYROID DISORDER
     Dosage: 50 MCG, QD
  4. COMBIPATCH [Suspect]
     Indication: HORMONE REPLACEMENT THERAPY
     Dosage: 0.05/0.14 MG/DAY, EVERY 4 DAYS
     Route: 062
     Dates: end: 20060101
  5. COMBIPATCH [Suspect]
     Dosage: 0.05/0.25 MG/DAY, EVERY 4 DAYS
     Route: 062
     Dates: start: 20060101

REACTIONS (5)
  - ARTHRALGIA [None]
  - GASTROINTESTINAL DISORDER [None]
  - HEADACHE [None]
  - KNEE OPERATION [None]
  - METRORRHAGIA [None]
